FAERS Safety Report 5188041-0 (Version None)
Quarter: 2006Q4

REPORT INFORMATION
  Report Type: 
  Country: None (occurrence: None)
  Receive Date: 20061214
  Receipt Date: 20061128
  Transmission Date: 20070319
  Serious: Yes (Hospitalization)
  Sender: FDA-Public Use
  Company Number: 2006BI015086

PATIENT
  Age: 50 Year
  Sex: Female

DRUGS (12)
  1. AVONEX [Suspect]
     Indication: RELAPSING-REMITTING MULTIPLE SCLEROSIS
     Dosage: 30 UG; QW; IM
     Route: 030
     Dates: start: 20050101
  2. TEMAZEPAM [Concomitant]
  3. EZETROL [Concomitant]
  4. TRAMADEX [Concomitant]
  5. COLACE [Concomitant]
  6. AMITRIPTYLINE HCL [Concomitant]
  7. ZYPREXA [Concomitant]
  8. LYRICA [Concomitant]
  9. ASPIRIN [Concomitant]
  10. VITAMIN D [Concomitant]
  11. MSM [Concomitant]
  12. OMEGA [Concomitant]

REACTIONS (4)
  - CLOSTRIDIUM DIFFICILE COLITIS [None]
  - DEPRESSED LEVEL OF CONSCIOUSNESS [None]
  - RECTOCELE [None]
  - SEPSIS [None]
